FAERS Safety Report 4483717-2 (Version None)
Quarter: 2004Q4

REPORT INFORMATION
  Report Type: 
  Country: None (occurrence: None)
  Receive Date: 20041021
  Receipt Date: 20041013
  Transmission Date: 20050328
  Serious: Yes (Life-Threatening, Hospitalization, Disabling, Other)
  Sender: FDA-Public Use
  Company Number: 2004239211US

PATIENT
  Age: 74 Year
  Sex: Female
  Weight: 70.7 kg

DRUGS (2)
  1. XANAX [Suspect]
     Indication: NERVOUSNESS
     Dosage: 1 MG/DAY, ORAL
     Route: 048
  2. GLIPIZIDE [Concomitant]

REACTIONS (24)
  - ANAPHYLACTIC SHOCK [None]
  - ANXIETY [None]
  - ARTHRALGIA [None]
  - BLOOD CHOLESTEROL INCREASED [None]
  - BLOOD POTASSIUM DECREASED [None]
  - BODY HEIGHT DECREASED [None]
  - CATARACT [None]
  - CHEST DISCOMFORT [None]
  - DECREASED ACTIVITY [None]
  - DIFFICULTY IN WALKING [None]
  - FEELING ABNORMAL [None]
  - FOOD ALLERGY [None]
  - INTERVERTEBRAL DISC DEGENERATION [None]
  - JOINT STIFFNESS [None]
  - LUPUS VASCULITIS [None]
  - MICTURITION URGENCY [None]
  - NERVOUSNESS [None]
  - NOCTURIA [None]
  - OSTEOPOROSIS [None]
  - PAIN [None]
  - RASH MACULAR [None]
  - SWELLING FACE [None]
  - URINARY INCONTINENCE [None]
  - WEIGHT INCREASED [None]
